FAERS Safety Report 12939388 (Version 1)
Quarter: 2016Q4

REPORT INFORMATION
  Report Type: Spontaneous
  Country: DK (occurrence: DK)
  Receive Date: 20161114
  Receipt Date: 20161114
  Transmission Date: 20170207
  Serious: Yes (Other)
  Sender: FDA-Public Use
  Company Number: DK-TEVA-711392ISR

PATIENT
  Age: 11 Year
  Sex: Female

DRUGS (3)
  1. ARIPIPRAZOLE. [Suspect]
     Active Substance: ARIPIPRAZOLE
     Indication: TOURETTE^S DISORDER
     Dosage: 2 MG/DAY
     Route: 065
  2. MELATONIN [Concomitant]
     Active Substance: MELATONIN
     Route: 065
  3. ARIPIPRAZOLE. [Suspect]
     Active Substance: ARIPIPRAZOLE
     Indication: AUTISM SPECTRUM DISORDER
     Dosage: 2 MG/DAY
     Route: 065

REACTIONS (7)
  - Tic [Unknown]
  - Weight increased [Unknown]
  - Hallucination [Unknown]
  - Off label use [Unknown]
  - Suicidal behaviour [Unknown]
  - Product use issue [Unknown]
  - Akathisia [Unknown]
